APPROVED DRUG PRODUCT: NALOXONE
Active Ingredient: NALOXONE HYDROCHLORIDE
Strength: 0.02MG/ML
Dosage Form/Route: INJECTABLE;INJECTION
Application: A070189 | Product #001
Applicant: WYETH AYERST LABORATORIES
Approved: Sep 24, 1986 | RLD: No | RS: No | Type: DISCN